FAERS Safety Report 9158165 (Version 1)
Quarter: 2013Q1

REPORT INFORMATION
  Report Type: Spontaneous
  Country: CN (occurrence: None)
  Receive Date: 20130212
  Receipt Date: 20130212
  Transmission Date: 20140127
  Serious: Yes (Other)
  Sender: FDA-Public Use
  Company Number: 2012P1013021

PATIENT
  Age: 27 Year
  Sex: Female

DRUGS (1)
  1. ALBENDAZOLE [Suspect]
     Indication: ABDOMINAL PAIN
     Dates: start: 20120323

REACTIONS (3)
  - Pregnancy [None]
  - Abortion induced [None]
  - Exposure during pregnancy [None]
